FAERS Safety Report 9495786 (Version 1)
Quarter: 2013Q3

REPORT INFORMATION
  Report Type: Spontaneous
  Country: US (occurrence: US)
  Receive Date: 20130903
  Receipt Date: 20130903
  Transmission Date: 20140515
  Serious: Yes (Other)
  Sender: FDA-Public Use
  Company Number: US-TEVA-429412USA

PATIENT
  Sex: Female

DRUGS (3)
  1. TRISENOX [Suspect]
  2. ALOXI [Suspect]
  3. DIFLUCAN [Suspect]

REACTIONS (2)
  - Electrocardiogram QT prolonged [Unknown]
  - Nausea [Unknown]
